FAERS Safety Report 10175407 (Version 1)
Quarter: 2014Q2

REPORT INFORMATION
  Report Type: Spontaneous
  Country: ES (occurrence: ES)
  Receive Date: 20140515
  Receipt Date: 20140515
  Transmission Date: 20141212
  Serious: Yes (Other)
  Sender: FDA-Public Use
  Company Number: ES-BAXTER-2014BAX023251

PATIENT
  Age: 44 Year
  Sex: Male

DRUGS (4)
  1. KIOVIG 100 MG/ML SOLUCI?N PARA PERFUSI?N 20G/200ML [Suspect]
     Indication: IMMUNE THROMBOCYTOPENIC PURPURA
     Dosage: 1 G/KG
     Route: 042
  2. KIOVIG 100 MG/ML SOLUCI?N PARA PERFUSI?N 20G/200ML [Suspect]
     Dosage: 1 G/KG REPEATED 24 HOURS AFTER INITIAL DOSE
     Route: 065
  3. HEPARIN SODIUM [Suspect]
     Indication: CARDIOVASCULAR DISORDER
     Route: 065
  4. CLOPIDOGREL [Suspect]
     Indication: CARDIOVASCULAR DISORDER
     Route: 048

REACTIONS (3)
  - Chest pain [Recovered/Resolved]
  - Electrocardiogram ST segment elevation [Recovered/Resolved]
  - Thrombosis in device [Recovered/Resolved]
